FAERS Safety Report 9464636 (Version 2)
Quarter: 2013Q3

REPORT INFORMATION
  Report Type: Spontaneous
  Country: GB (occurrence: GB)
  Receive Date: 20130819
  Receipt Date: 20130830
  Transmission Date: 20140515
  Serious: Yes (Disabling)
  Sender: FDA-Public Use
  Company Number: GB-PFIZER INC-2013237517

PATIENT
  Age: 33 Year
  Sex: Male
  Weight: 82.55 kg

DRUGS (2)
  1. CHAMPIX [Suspect]
     Indication: SMOKING CESSATION THERAPY
     Dosage: 1 MG, 2X/DAY
     Route: 048
     Dates: start: 20130709, end: 20130731
  2. LOPERAMIDE [Concomitant]
     Dosage: 10 MG, UNK

REACTIONS (9)
  - Suicidal ideation [Recovered/Resolved]
  - Paranoia [Recovered/Resolved]
  - Stress [Recovered/Resolved]
  - Hypertension [Recovered/Resolved]
  - Intentional self-injury [Recovered/Resolved]
  - Tachycardia [Unknown]
  - Thirst [Unknown]
  - Mood altered [Recovered/Resolved]
  - Aggression [Recovered/Resolved]
